FAERS Safety Report 8617844-2 (Version None)
Quarter: 2012Q3

REPORT INFORMATION
  Report Type: 
  Country: None (occurrence: None)
  Receive Date: 20120824
  Receipt Date: 20120322
  Transmission Date: 20120928
  Serious: No
  Sender: FDA-Public Use
  Company Number: US-ASTRAZENECA-2012SE14175

PATIENT
  Age: 55 Year
  Sex: Female

DRUGS (3)
  1. SYMBICORT [Suspect]
     Dosage: 160/4.5 MCG, UNKNOWN
     Route: 055
  2. SYMBICORT [Suspect]
     Dosage: 80/4.5 MCG, UNKNOWN
     Route: 055
  3. NEXIUM [Suspect]
     Route: 048

REACTIONS (6)
  - LUNG INFILTRATION [None]
  - FALL [None]
  - SINUSITIS [None]
  - JOINT INJURY [None]
  - HAEMORRHOIDS [None]
  - RESPIRATORY DISORDER [None]
